FAERS Safety Report 25908736 (Version 2)
Quarter: 2025Q4

REPORT INFORMATION
  Report Type: Spontaneous
  Country: CA (occurrence: CA)
  Receive Date: 20251011
  Receipt Date: 20251017
  Transmission Date: 20260118
  Serious: Yes (Other)
  Sender: CELLTRION
  Company Number: CA-CELLTRION INC.-2025CA028294

PATIENT

DRUGS (3)
  1. INFLIXIMAB [Suspect]
     Active Substance: INFLIXIMAB
     Indication: Crohn^s disease
     Dosage: 300 MG EVERY 8 WEEKS (MAINTENANCE)
     Route: 042
     Dates: start: 20250617
  2. INFLIXIMAB [Suspect]
     Active Substance: INFLIXIMAB
     Dosage: 300 MG EVERY 8 WEEKS (MAINTENANCE)
     Route: 042
     Dates: start: 20250812
  3. INFLIXIMAB [Suspect]
     Active Substance: INFLIXIMAB
     Dosage: MAINTENANCE - 300 MG - EVERY 8 WEEKS
     Route: 042
     Dates: start: 20250617

REACTIONS (6)
  - Glaucoma [Unknown]
  - Harvey-Bradshaw index abnormal [Unknown]
  - Anal fissure [Unknown]
  - Diarrhoea [Unknown]
  - Arthralgia [Unknown]
  - Off label use [Unknown]

NARRATIVE: CASE EVENT DATE: 20250101
